FAERS Safety Report 20679094 (Version 4)
Quarter: 2022Q3

REPORT INFORMATION
  Report Type: Report from Study
  Country: US (occurrence: US)
  Receive Date: 20220406
  Receipt Date: 20220624
  Transmission Date: 20221026
  Serious: No
  Sender: FDA-Public Use
  Company Number: US-NOVARTISTESTPH-NVSC2022US078110

PATIENT
  Age: 47 Year
  Sex: Male

DRUGS (1)
  1. ENTRESTO [Suspect]
     Active Substance: SACUBITRIL\VALSARTAN
     Indication: Product used for unknown indication
     Dosage: 1 DOSAGE FORM, BID (24/26 MG)
     Route: 048
     Dates: start: 202202

REACTIONS (4)
  - Weight decreased [Unknown]
  - Vision blurred [Unknown]
  - Weight increased [Recovered/Resolved]
  - Dizziness postural [Recovering/Resolving]

NARRATIVE: CASE EVENT DATE: 20220201
